FAERS Safety Report 20214292 (Version 1)
Quarter: 2021Q4

REPORT INFORMATION
  Report Type: Report from Study
  Country: FR (occurrence: FR)
  Receive Date: 20211221
  Receipt Date: 20211221
  Transmission Date: 20220303
  Serious: Yes (Other)
  Sender: FDA-Public Use
  Company Number: FR-SERVIER-S21013765

PATIENT

DRUGS (9)
  1. PEGASPARGASE [Suspect]
     Active Substance: PEGASPARGASE
     Indication: Acute lymphocytic leukaemia
     Dosage: 3200 IU, D6
     Route: 042
     Dates: start: 20180107, end: 20180107
  2. TN UNSPECIFIED [Concomitant]
     Indication: Acute lymphocytic leukaemia
     Dosage: 2550 MG, D1, D2
     Route: 042
     Dates: start: 20180102, end: 20180103
  3. TN UNSPECIFIED [Concomitant]
     Dosage: 30MG, D5
     Route: 037
     Dates: start: 20180106, end: 20180106
  4. TN UNSPECIFIED [Concomitant]
     Indication: Acute lymphocytic leukaemia
     Dosage: 26 MG, D1 TO D5
     Route: 048
     Dates: start: 20180102, end: 20180106
  5. TN UNSPECIFIED [Concomitant]
     Dosage: 12MG, D6
     Route: 048
     Dates: start: 20180107, end: 20180107
  6. CYANOCOBALAMIN\PYRIDOXAMINE HYDROCHLORIDE\THIAMINE HYDROCHLORIDE [Concomitant]
     Active Substance: CYANOCOBALAMIN\PYRIDOXAMINE HYDROCHLORIDE\THIAMINE HYDROCHLORIDE
     Indication: Acute lymphocytic leukaemia
     Dosage: 10 MG, D4, D5
     Route: 042
     Dates: start: 20180104, end: 20180105
  7. TN UNSPECIFIED [Concomitant]
     Indication: Acute lymphocytic leukaemia
     Dosage: 190 MG, D3 TO D5
     Route: 042
     Dates: start: 20180104, end: 20180106
  8. TN UNSPECIFIED [Concomitant]
     Indication: Acute lymphocytic leukaemia
     Dosage: 12 MG, D5
     Route: 037
     Dates: start: 20180106, end: 20180106
  9. TN UNSPECIFIED [Concomitant]
     Indication: Acute lymphocytic leukaemia
     Dosage: 15 MG, D5
     Route: 037
     Dates: start: 20180106, end: 20180106

REACTIONS (1)
  - Liver disorder [Recovered/Resolved]

NARRATIVE: CASE EVENT DATE: 20180205
